FAERS Safety Report 25228948 (Version 3)
Quarter: 2025Q3

REPORT INFORMATION
  Report Type: Spontaneous
  Country: US (occurrence: US)
  Receive Date: 20250423
  Receipt Date: 20250819
  Transmission Date: 20251020
  Serious: Yes (Other)
  Sender: RANBAXY
  Company Number: US-SUN PHARMACEUTICAL INDUSTRIES LTD-2025R1-504817

PATIENT
  Age: 23 Year
  Sex: Male

DRUGS (1)
  1. DILTIAZEM [Suspect]
     Active Substance: DILTIAZEM
     Indication: Product used for unknown indication
     Route: 048

REACTIONS (9)
  - Overdose [Unknown]
  - Shock [Unknown]
  - Lactic acidosis [Unknown]
  - Acute kidney injury [Unknown]
  - Atrioventricular block second degree [Recovered/Resolved]
  - Supraventricular extrasystoles [Unknown]
  - Vomiting [Unknown]
  - Hyperglycaemia [Recovering/Resolving]
  - Nausea [Unknown]
